FAERS Safety Report 12587550 (Version 2)
Quarter: 2016Q4

REPORT INFORMATION
  Report Type: Spontaneous
  Country: IT (occurrence: IT)
  Receive Date: 20160725
  Receipt Date: 20161129
  Transmission Date: 20170207
  Serious: Yes (Other)
  Sender: FDA-Public Use
  Company Number: IT-TEVA-678514ACC

PATIENT
  Age: 59 Year
  Sex: Female

DRUGS (2)
  1. DIBASE - PROGRAMMI SANITARI INTEGRATI S.R.L. [Concomitant]
     Indication: PRODUCT USED FOR UNKNOWN INDICATION
  2. FLUOXETINA RATIOPHARM - RATIOPHARM GMBH [Suspect]
     Active Substance: FLUOXETINE HYDROCHLORIDE
     Indication: DEPRESSION
     Dosage: 20 MILLIGRAM DAILY; 20 MG DAILY
     Route: 048
     Dates: start: 20151201, end: 20160601

REACTIONS (3)
  - Pharyngeal haematoma [Unknown]
  - Oropharyngeal plaque [Unknown]
  - Vascular injury [Unknown]

NARRATIVE: CASE EVENT DATE: 20160601
